FAERS Safety Report 5266195-5 (Version None)
Quarter: 2007Q1

REPORT INFORMATION
  Report Type: 
  Country: None (occurrence: None)
  Receive Date: 20070315
  Receipt Date: 20070308
  Transmission Date: 20070707
  Serious: Yes (Hospitalization)
  Sender: FDA-Public Use
  Company Number: 2007AP01557

PATIENT
  Age: 89 Year
  Sex: Male

DRUGS (5)
  1. ZOLADEX [Suspect]
     Indication: PROSTATE CANCER
     Route: 058
     Dates: start: 20061102
  2. CASODEX [Suspect]
     Indication: PROSTATE CANCER
     Route: 048
     Dates: start: 20061102
  3. PREDONINE [Concomitant]
     Route: 048
     Dates: start: 20061204
  4. LONGES [Concomitant]
     Route: 048
     Dates: start: 20061204
  5. ASPIRIN [Concomitant]
     Route: 048
     Dates: start: 20061204

REACTIONS (1)
  - INTERSTITIAL LUNG DISEASE [None]
